FAERS Safety Report 8243898 (Version 3)
Quarter: 2012Q4

REPORT INFORMATION
  Report Type: 
  Country: US (occurrence: US)
  Receive Date: 20111114
  Receipt Date: 20120831
  Transmission Date: 20130627
  Serious: Yes (Hospitalization, Other)
  Sender: FDA-Public Use
  Company Number: US-BAYER-2011-107625

PATIENT
  Age: 27 Year
  Sex: Female

DRUGS (1)
  1. YASMIN [Suspect]
     Dosage: UNK
     Dates: start: 2001, end: 2006

REACTIONS (9)
  - Transient ischaemic attack [None]
  - Venous thrombosis [None]
  - Injury [None]
  - Pain [None]
  - Emotional distress [None]
  - Hemiparesis [None]
  - Hypoaesthesia [None]
  - Hypoaesthesia [None]
  - Asthenia [None]
